FAERS Safety Report 18197925 (Version 1)
Quarter: 2020Q3

REPORT INFORMATION
  Report Type: Spontaneous
  Country: GB (occurrence: GB)
  Receive Date: 20200826
  Receipt Date: 20200826
  Transmission Date: 20201103
  Serious: Yes (Disabling, Congenital Anomaly)
  Sender: FDA-Public Use
  Company Number: GB-PFIZER INC-2020325540

PATIENT

DRUGS (2)
  1. SERTRALINE HCL [Suspect]
     Active Substance: SERTRALINE HYDROCHLORIDE
     Indication: DEPRESSION
     Dosage: 50 MG, DAILY
     Route: 064
     Dates: end: 20190424
  2. PROPRANOLOL [Suspect]
     Active Substance: PROPRANOLOL HYDROCHLORIDE
     Dosage: 10 MG, AS NEEDED
     Route: 064
     Dates: end: 201904

REACTIONS (9)
  - Septo-optic dysplasia [Unknown]
  - Brain malformation [Unknown]
  - Myoclonus [Unknown]
  - Neurodevelopmental disorder [Not Recovered/Not Resolved]
  - Premature baby [Unknown]
  - Seizure [Unknown]
  - Neurologic neglect syndrome [Unknown]
  - Maternal exposure during pregnancy [Unknown]
  - Schizencephaly [Unknown]

NARRATIVE: CASE EVENT DATE: 20191204
